FAERS Safety Report 20488302 (Version 2)
Quarter: 2022Q1

REPORT INFORMATION
  Report Type: Spontaneous
  Country: US (occurrence: US)
  Receive Date: 20220218
  Receipt Date: 20220221
  Transmission Date: 20220424
  Serious: Yes (Hospitalization)
  Sender: FDA-Public Use
  Company Number: US-CELGENE-USA-20220204128

PATIENT
  Sex: Female

DRUGS (1)
  1. POMALYST [Suspect]
     Active Substance: POMALIDOMIDE
     Indication: Plasma cell leukaemia
     Dosage: 2 MILLIGRAM
     Route: 048
     Dates: start: 202111

REACTIONS (3)
  - COVID-19 pneumonia [Unknown]
  - Confusional state [Unknown]
  - Fatigue [Unknown]
